FAERS Safety Report 6684849-0 (Version None)
Quarter: 2010Q2

REPORT INFORMATION
  Report Type: 
  Country: None (occurrence: None)
  Receive Date: 20100416
  Receipt Date: 20100412
  Transmission Date: 20101027
  Serious: Yes (Hospitalization)
  Sender: FDA-Public Use
  Company Number: DE-BRISTOL-MYERS SQUIBB COMPANY-15057797

PATIENT
  Age: 65 Year
  Sex: Male
  Weight: 94 kg

DRUGS (11)
  1. TAXOL [Interacting]
     Indication: BLADDER TRANSITIONAL CELL CARCINOMA
     Route: 042
     Dates: start: 20090601
  2. ZOFRAN [Interacting]
     Indication: CHEMOTHERAPY
     Dosage: FILM COATED TABS
     Route: 048
     Dates: start: 20090101
  3. SEVREDOL [Interacting]
     Indication: CANCER PAIN
     Dosage: FILM COATED TABS
     Route: 048
     Dates: start: 20090620
  4. PALLADONE [Suspect]
     Indication: CANCER PAIN
     Dosage: 13-JUL-2009 2X12MG PER DAY AND SINCE 20-JUL-2009 2X24MG PER DAY
     Route: 048
     Dates: start: 20090620
  5. MEGESTAT-160 TABS 160 MG [Concomitant]
     Indication: DECREASED APPETITE
     Route: 048
     Dates: start: 20090101
  6. PANTOPRAZOLE SODIUM [Concomitant]
     Indication: PROPHYLAXIS AGAINST GASTROINTESTINAL ULCER
     Dosage: TABS
     Route: 048
  7. FOLIC ACID [Concomitant]
     Indication: ANAEMIA
     Dosage: TABS
     Route: 048
     Dates: start: 20090601
  8. BISOPROLOL [Concomitant]
     Indication: HYPERTENSION
     Dosage: TABS
     Route: 048
     Dates: start: 20000101
  9. TAVOR [Concomitant]
     Indication: ANXIETY
     Dosage: TABS
     Route: 048
     Dates: start: 20040101
  10. GABAPENTIN [Concomitant]
     Indication: CANCER PAIN
     Dosage: HARD CAPSULE
     Route: 048
     Dates: start: 20070101
  11. LAXOBERAL [Concomitant]
     Indication: CONSTIPATION
     Route: 048
     Dates: start: 20090601

REACTIONS (3)
  - DRUG INTERACTION [None]
  - HYPOKALAEMIA [None]
  - ILEUS [None]
